FAERS Safety Report 6415955-3 (Version None)
Quarter: 2009Q4

REPORT INFORMATION
  Report Type: 
  Country: None (occurrence: None)
  Receive Date: 20091027
  Receipt Date: 20091019
  Transmission Date: 20100525
  Serious: Yes (Other)
  Sender: FDA-Public Use
  Company Number: B0597669A

PATIENT
  Age: 14 Year
  Sex: Male

DRUGS (3)
  1. RELENZA [Suspect]
     Indication: INFLUENZA
     Dosage: 10MG PER DAY
     Route: 055
     Dates: start: 20091007, end: 20091007
  2. ACETAMINOPHEN [Concomitant]
     Route: 048
     Dates: start: 20091007
  3. DIPHENHYDRAMINE HCL [Concomitant]
     Route: 048
     Dates: start: 20091007

REACTIONS (2)
  - ABNORMAL BEHAVIOUR [None]
  - HALLUCINATION [None]
